FAERS Safety Report 22356296 (Version 1)
Quarter: 2023Q2

REPORT INFORMATION
  Report Type: Spontaneous
  Country: CN (occurrence: CN)
  Receive Date: 20230523
  Receipt Date: 20230523
  Transmission Date: 20230722
  Serious: Yes (Hospitalization)
  Sender: FDA-Public Use
  Company Number: CN-BAYER-2023A066457

PATIENT
  Age: 67 Year
  Sex: Male
  Weight: 71 kg

DRUGS (3)
  1. STIVARGA [Suspect]
     Active Substance: REGORAFENIB
     Indication: Colon cancer
     Dosage: 80 MG, QD
     Route: 048
     Dates: start: 20230113, end: 20230314
  2. TISLELIZUMAB [Suspect]
     Active Substance: TISLELIZUMAB
     Indication: Colon cancer
     Dosage: 200 MG, QD. DISSOLVED IN 0.9% 100 ML SODIUM CHLORIDE
     Route: 041
     Dates: start: 20230302, end: 20230302
  3. TISLELIZUMAB [Suspect]
     Active Substance: TISLELIZUMAB
     Indication: Immunochemotherapy

REACTIONS (6)
  - Autoimmune hepatitis [Recovering/Resolving]
  - Asthenia [None]
  - Decreased appetite [None]
  - Chromaturia [None]
  - Yellow skin [None]
  - Off label use [None]

NARRATIVE: CASE EVENT DATE: 20230101
